FAERS Safety Report 9261895 (Version 2)
Quarter: 2013Q2

REPORT INFORMATION
  Report Type: Spontaneous
  Country: US (occurrence: US)
  Receive Date: 20130429
  Receipt Date: 20130514
  Transmission Date: 20140414
  Serious: Yes (Death)
  Sender: FDA-Public Use
  Company Number: US-BAXTER-2013BAX005624

PATIENT
  Sex: Female

DRUGS (8)
  1. DIANEAL LOW CALCIUM [Suspect]
     Indication: PERITONEAL DIALYSIS
     Route: 033
     Dates: start: 200801, end: 20130403
  2. DIANEAL LOW CALCIUM [Suspect]
     Route: 033
     Dates: start: 200801, end: 20130403
  3. DIANEAL LOW CALCIUM [Suspect]
     Indication: PERITONEAL DIALYSIS
     Route: 033
     Dates: start: 200801, end: 20130403
  4. DIANEAL LOW CALCIUM [Suspect]
     Route: 033
     Dates: start: 200801, end: 20130403
  5. DIANEAL LOW CALCIUM [Suspect]
     Indication: PERITONEAL DIALYSIS
     Route: 033
     Dates: start: 200801, end: 20130403
  6. DIANEAL LOW CALCIUM [Suspect]
     Route: 033
     Dates: start: 200801, end: 20130403
  7. DIANEAL LOW CALCIUM (ULTRABAG) [Suspect]
     Indication: PERITONEAL DIALYSIS
     Route: 033
     Dates: start: 200801, end: 20130403
  8. DIANEAL LOW CALCIUM (ULTRABAG) [Suspect]
     Indication: PERITONEAL DIALYSIS
     Route: 033
     Dates: start: 200801, end: 20130403

REACTIONS (3)
  - Cardiac disorder [Fatal]
  - Renal disorder [Fatal]
  - Cardiac procedure complication [Fatal]
